FAERS Safety Report 9472132 (Version 1)
Quarter: 2013Q3

REPORT INFORMATION
  Report Type: Spontaneous
  Country: GB (occurrence: GB)
  Receive Date: 20130823
  Receipt Date: 20130823
  Transmission Date: 20140515
  Serious: Yes (Death, Hospitalization, Other)
  Sender: FDA-Public Use
  Company Number: GB-JNJFOC-20130810791

PATIENT
  Age: 8 Month
  Sex: Female

DRUGS (4)
  1. CALPOL [Suspect]
     Indication: MALAISE
     Route: 065
  2. CALPOL [Suspect]
     Indication: PYREXIA
     Route: 065
  3. NUROFEN [Suspect]
     Indication: MALAISE
     Route: 065
  4. NUROFEN [Suspect]
     Indication: PYREXIA
     Route: 065

REACTIONS (1)
  - Meningitis [Fatal]
